FAERS Safety Report 7999858-9 (Version None)
Quarter: 2011Q4

REPORT INFORMATION
  Report Type: 
  Country: None (occurrence: None)
  Receive Date: 20111222
  Receipt Date: 20111212
  Transmission Date: 20120403
  Serious: Yes (Hospitalization)
  Sender: FDA-Public Use
  Company Number: US-BIOGENIDEC-2011BI039951

PATIENT
  Age: 51 Year
  Sex: Female

DRUGS (29)
  1. BENAZEPRIL HYDROCHLORIDE [Concomitant]
     Route: 048
  2. OXYCODONE/ACETAMINOPHEN [Concomitant]
     Indication: PAIN
  3. VOLTAREN [Concomitant]
     Route: 062
  4. ADDERALL XR 10 [Concomitant]
  5. COLACE [Concomitant]
     Route: 048
  6. AVONEX [Concomitant]
     Route: 030
     Dates: start: 20031009
  7. FISH OIL [Concomitant]
     Route: 048
  8. OMEPRAZOLE [Concomitant]
     Route: 048
  9. TYLENOL ES [Concomitant]
     Route: 048
  10. CLONAZEPAM [Concomitant]
     Route: 048
  11. TRIAMTERENE AND HYDROCHLOROTHIAZIDE [Concomitant]
     Route: 048
  12. VITAMIN D [Concomitant]
     Route: 048
  13. ZOLPIDEM TARTRATE [Concomitant]
     Indication: INSOMNIA
     Route: 048
  14. AMLODIPINE [Concomitant]
     Route: 048
  15. MECLIZINE HCL [Concomitant]
     Indication: DIZZINESS
     Route: 048
  16. MELOXICAM [Concomitant]
     Route: 048
  17. SENNA [Concomitant]
     Route: 048
  18. TYSABRI [Suspect]
     Indication: MULTIPLE SCLEROSIS
     Route: 042
     Dates: start: 20091222
  19. AVONEX [Concomitant]
     Indication: MULTIPLE SCLEROSIS
     Route: 030
     Dates: start: 20091201
  20. ASPIRIN [Concomitant]
     Route: 048
  21. CLARITIN [Concomitant]
     Route: 048
  22. MULTI-VITAMIN [Concomitant]
     Route: 048
  23. CITALOPRAM [Concomitant]
     Route: 048
  24. CITRUCEL [Concomitant]
     Route: 048
  25. VITAMIN B-12 [Concomitant]
     Route: 048
  26. NASONEX [Concomitant]
  27. BACLOFEN [Concomitant]
     Route: 048
  28. CRESTOR [Concomitant]
     Route: 048
  29. ONDANSETRON HYDROCHLORIDE [Concomitant]
     Indication: NAUSEA
     Route: 048

REACTIONS (3)
  - VERTIGO [None]
  - CHEST PAIN [None]
  - MULTIPLE SCLEROSIS RELAPSE [None]
